FAERS Safety Report 20310272 (Version 3)
Quarter: 2022Q1

REPORT INFORMATION
  Report Type: Spontaneous
  Country: CA (occurrence: CA)
  Receive Date: 20220107
  Receipt Date: 20220325
  Transmission Date: 20220423
  Serious: Yes (Other)
  Sender: FDA-Public Use
  Company Number: CA-PFIZER INC-202101625194

PATIENT
  Age: 40 Year
  Sex: Male
  Weight: 65.578 kg

DRUGS (2)
  1. XELJANZ [Suspect]
     Active Substance: TOFACITINIB CITRATE
     Indication: Colitis ulcerative
     Dosage: 10 MG, 2X/DAY (10 MG BID FOR 16 WEEKS THEN 5 MG BID,)
     Route: 048
     Dates: start: 20211108
  2. PREDNISONE [Concomitant]
     Active Substance: PREDNISONE
     Dosage: TAPER

REACTIONS (6)
  - Therapeutic product effect incomplete [Unknown]
  - Dental operation [Unknown]
  - Rectal haemorrhage [Unknown]
  - Frequent bowel movements [Unknown]
  - Abdominal distension [Unknown]
  - Muscle spasms [Unknown]

NARRATIVE: CASE EVENT DATE: 20210101
